FAERS Safety Report 9995281 (Version 1)
Quarter: 2014Q1

REPORT INFORMATION
  Report Type: Spontaneous
  Country: US (occurrence: None)
  Receive Date: 20140225
  Receipt Date: 20140225
  Transmission Date: 20141002
  Serious: Yes (Hospitalization, Other)
  Sender: FDA-Public Use
  Company Number: 2013-218

PATIENT
  Age: 51 Year
  Sex: Female

DRUGS (3)
  1. PRIALT (ZICONOTIDE) INTRATHECAL INFUSION [Suspect]
     Indication: PAIN
     Dosage: UNK MCG, ONCE/HOUR, INTRATHECAL
     Route: 037
  2. FENTANYL (FENTANYL CITRATE) INJECTION [Suspect]
     Indication: PAIN
     Dosage: UNK MCG, ONCE/HOUR, INTRATHECAL
     Route: 037
  3. CLONIDINE [Suspect]
     Indication: PAIN
     Route: 037

REACTIONS (4)
  - Drug withdrawal syndrome [None]
  - Hallucination [None]
  - Hallucination, auditory [None]
  - Premenstrual syndrome [None]
